FAERS Safety Report 8657781 (Version 4)
Quarter: 2015Q2

REPORT INFORMATION
  Report Type: Spontaneous
  Country: US (occurrence: US)
  Receive Date: 20120710
  Receipt Date: 20150622
  Transmission Date: 20150821
  Serious: Yes (Hospitalization, Other)
  Sender: FDA-Public Use
  Company Number: US-PFIZER INC-2012161830

PATIENT
  Age: 67 Year
  Sex: Male
  Weight: 111 kg

DRUGS (24)
  1. NISOLDIPINE. [Concomitant]
     Active Substance: NISOLDIPINE
     Indication: PULMONARY HYPERTENSION
     Dosage: 20 MG, 1X/DAY
     Route: 048
  2. NOVOLIN N [Concomitant]
     Active Substance: INSULIN HUMAN
     Dosage: 100 UNIT/ML SUSPENSION 18 UNITS IN THE MORNING AND 15 UNITS AT NIGHT
  3. ALBUTEROL SULFATE HFA [Concomitant]
     Indication: DYSPNOEA
     Dosage: 108 (90 BASE) MCG/ACT 2 PUFFS AS NEEDED EVERY 4 HOURS
  4. FLONASE [Concomitant]
     Active Substance: FLUTICASONE PROPIONATE
     Dosage: 2 SPRAYS NASALLY 2 TIMES A DAY
     Route: 045
  5. COLCRYS [Concomitant]
     Active Substance: COLCHICINE
     Dosage: 0.6 MG, 1X/DAY (AS NEEDED)
     Route: 048
  6. REVATIO [Suspect]
     Active Substance: SILDENAFIL CITRATE
     Indication: DYSPNOEA
     Dosage: 20 MG, 3X/DAY
     Dates: start: 2012
  7. RECLAST [Concomitant]
     Active Substance: ZOLEDRONIC ACID
     Dosage: 5 MG/100ML, AS DIRECTED, INTRAVENOUS AS DIRECTED
     Route: 042
  8. SYMBICORT [Concomitant]
     Active Substance: BUDESONIDE\FORMOTEROL FUMARATE DIHYDRATE
     Dosage: 80-4.5 MCG/ACT AEROSOL 2 PUFFS TWICE A DAY
  9. GABAPENTIN. [Concomitant]
     Active Substance: GABAPENTIN
     Dosage: 100 MG,AS DIRECTED ONE 2X/DAY
  10. ALPRAZOLAM. [Concomitant]
     Active Substance: ALPRAZOLAM
     Dosage: 0.25 MG, AS NEEDED
  11. GLIPIZIDE. [Concomitant]
     Active Substance: GLIPIZIDE
     Dosage: 5 MG TABLET 1 TABLET TWICE A DAY
  12. PREDNISONE. [Concomitant]
     Active Substance: PREDNISONE
     Indication: CHRONIC OBSTRUCTIVE PULMONARY DISEASE
     Dosage: 5 MG, 1 TABLET WITH FOOD OR MILK ONCE A DAY
     Route: 048
  13. BENADRYL ALLERGY [Concomitant]
     Active Substance: DIPHENHYDRAMINE HYDROCHLORIDE
     Dosage: 12.5 MG/5 ML ELIXIR 5 ML EVERY 6 HOURS (AS NEEDED)
  14. PRAVASTATIN SODIUM. [Concomitant]
     Active Substance: PRAVASTATIN SODIUM
     Dosage: 20 MG, 1X/DAY
  15. ALLOPURINOL. [Concomitant]
     Active Substance: ALLOPURINOL
     Dosage: 300 MG, DAILY (TAKE ONE TABLET BY MOUTH EVERY DAY DAILY)
     Route: 048
  16. ADVAIR HFA [Concomitant]
     Active Substance: FLUTICASONE PROPIONATE\SALMETEROL XINAFOATE
     Indication: CHRONIC OBSTRUCTIVE PULMONARY DISEASE
     Dosage: 115-21 MCG/ACT, 2 PUFFS, INHALATION, TWICE A DAY
  17. VOLTAREN [Concomitant]
     Active Substance: DICLOFENAC SODIUM
     Dosage: 1% GEL APPLY 2 G, 4X/DAY
  18. HYZAAR [Concomitant]
     Active Substance: HYDROCHLOROTHIAZIDE\LOSARTAN POTASSIUM
     Indication: CARDIAC FAILURE CONGESTIVE
     Dosage: 50-12.5 MG, 1 TABLET, ONCE A DAY
     Route: 048
  19. MAXZIDE [Concomitant]
     Active Substance: HYDROCHLOROTHIAZIDE\TRIAMTERENE
     Indication: CARDIAC FAILURE CONGESTIVE
     Dosage: 37.5-25 MG, 1 TABLET IN THE MORNING ONCE A DAY
     Route: 048
  20. REVATIO [Suspect]
     Active Substance: SILDENAFIL CITRATE
     Indication: PULMONARY HYPERTENSION
     Dosage: 20 MG, 3X/DAY
     Route: 048
     Dates: start: 201012
  21. DUONEB [Concomitant]
     Active Substance: ALBUTEROL SULFATE\IPRATROPIUM BROMIDE
     Indication: CHRONIC OBSTRUCTIVE PULMONARY DISEASE
     Dosage: 0.5-2.5 (3) MG/3ML, SOLUTION 3 ML, INHALATION, TWICE A DAY (BID)
  22. PREDNISONE. [Concomitant]
     Active Substance: PREDNISONE
     Dosage: 10 MG, 1 TABLET WITH FOOD OR MILK ONCE A DAY
  23. LASIX [Concomitant]
     Active Substance: FUROSEMIDE
     Indication: PULMONARY HYPERTENSION
     Dosage: 40 MG, 1X/DAY
     Route: 048
  24. CARVEDILOL. [Concomitant]
     Active Substance: CARVEDILOL
     Indication: CARDIAC FAILURE CONGESTIVE
     Dosage: 12.5 MG, 1 TABLET WITH FOOD, 2X/DAY

REACTIONS (5)
  - Diabetes mellitus [Unknown]
  - Anxiety [Unknown]
  - Dyspnoea exertional [Not Recovered/Not Resolved]
  - Pneumonia [Recovering/Resolving]
  - Rhinitis allergic [Unknown]

NARRATIVE: CASE EVENT DATE: 2012
